FAERS Safety Report 7673625-8 (Version None)
Quarter: 2011Q3

REPORT INFORMATION
  Report Type: 
  Country: None (occurrence: None)
  Receive Date: 20110810
  Receipt Date: 20110729
  Transmission Date: 20111222
  Serious: Yes (Hospitalization, Other)
  Sender: FDA-Public Use
  Company Number: PHEH2010US02624

PATIENT
  Sex: Female

DRUGS (12)
  1. PROTONIX [Concomitant]
  2. CODEINE SULFATE [Concomitant]
  3. GATIFLOXACIN [Concomitant]
  4. PAROXETINE HCL [Concomitant]
  5. ZOMETA [Suspect]
     Dosage: 4 MG, UNK
     Route: 042
     Dates: start: 20020502
  6. DURAGESIC-100 [Concomitant]
  7. XANAX [Concomitant]
  8. FLAGYL [Concomitant]
  9. AREDIA [Suspect]
     Indication: MULTIPLE MYELOMA
     Dosage: 90 MG, QMO
     Route: 042
     Dates: start: 19951229, end: 20020329
  10. TICLOPIDINE HCL [Concomitant]
     Indication: TRANSIENT ISCHAEMIC ATTACK
  11. ALPRAZOLAM [Concomitant]
  12. PIROXICAM [Concomitant]

REACTIONS (56)
  - RENAL FAILURE [None]
  - SPINAL OSTEOARTHRITIS [None]
  - MYELOMA RECURRENCE [None]
  - SOFT TISSUE DISORDER [None]
  - LYMPHOEDEMA [None]
  - OSTEONECROSIS OF JAW [None]
  - INJURY [None]
  - DEPRESSION [None]
  - PYREXIA [None]
  - SPINAL DEFORMITY [None]
  - VOMITING [None]
  - PURULENT DISCHARGE [None]
  - RESPIRATORY TRACT INFECTION [None]
  - PHYSICAL DISABILITY [None]
  - HYPOAESTHESIA ORAL [None]
  - ANAEMIA [None]
  - BLOOD CREATININE INCREASED [None]
  - HAEMOGLOBIN DECREASED [None]
  - NAUSEA [None]
  - PRIMARY SEQUESTRUM [None]
  - OSTEORADIONECROSIS [None]
  - APICAL GRANULOMA [None]
  - ARTHRITIS [None]
  - PAIN [None]
  - ANHEDONIA [None]
  - PARAESTHESIA ORAL [None]
  - INTERVERTEBRAL DISC PROTRUSION [None]
  - SWELLING [None]
  - ABSCESS ORAL [None]
  - BONE LESION [None]
  - LUMBAR SPINAL STENOSIS [None]
  - CHRONIC OBSTRUCTIVE PULMONARY DISEASE [None]
  - GASTROOESOPHAGEAL REFLUX DISEASE [None]
  - ATELECTASIS [None]
  - BONE LOSS [None]
  - DIARRHOEA [None]
  - DEFORMITY [None]
  - OSTEOPOROSIS [None]
  - EXPOSED BONE IN JAW [None]
  - OSTEOMYELITIS [None]
  - ABSCESS NECK [None]
  - FISTULA DISCHARGE [None]
  - DRUG HYPERSENSITIVITY [None]
  - SWELLING FACE [None]
  - BIPOLAR DISORDER [None]
  - ANXIETY [None]
  - MOUTH ULCERATION [None]
  - INFECTION [None]
  - URINARY TRACT INFECTION [None]
  - OSTEOARTHRITIS [None]
  - GLOMERULAR FILTRATION RATE DECREASED [None]
  - RED BLOOD CELL COUNT DECREASED [None]
  - WEIGHT DECREASED [None]
  - BLOOD CHOLESTEROL INCREASED [None]
  - VENOUS THROMBOSIS [None]
  - AORTIC CALCIFICATION [None]
